FAERS Safety Report 16479343 (Version 4)
Quarter: 2019Q3

REPORT INFORMATION
  Report Type: Spontaneous
  Country: PL (occurrence: PL)
  Receive Date: 20190626
  Receipt Date: 20190829
  Transmission Date: 20191004
  Serious: Yes (Hospitalization)
  Sender: FDA-Public Use
  Company Number: PL-OTSUKA-2019_024016

PATIENT
  Age: 23 Year
  Sex: Female

DRUGS (7)
  1. ARIPIPRAZOLE. [Suspect]
     Active Substance: ARIPIPRAZOLE
     Indication: SUICIDAL IDEATION
     Dosage: 10 MG, QD
     Route: 065
  2. ARIPIPRAZOLE. [Suspect]
     Active Substance: ARIPIPRAZOLE
     Indication: ANXIETY
     Dosage: 20 MG, QD
     Route: 065
  3. OLANZAPINE. [Suspect]
     Active Substance: OLANZAPINE
     Indication: SUICIDAL IDEATION
  4. ZINC SULFATE. [Concomitant]
     Active Substance: ZINC SULFATE
     Indication: PRODUCT USED FOR UNKNOWN INDICATION
     Dosage: 160 MG, UNK
     Route: 065
  5. ARIPIPRAZOLE. [Suspect]
     Active Substance: ARIPIPRAZOLE
     Indication: DEPRESSION
     Dosage: 10 MG, QD
     Route: 065
  6. OLANZAPINE. [Suspect]
     Active Substance: OLANZAPINE
     Indication: ANXIETY
     Dosage: 10 MG, QD
     Route: 065
  7. OLANZAPINE. [Suspect]
     Active Substance: OLANZAPINE
     Indication: DEPRESSION

REACTIONS (6)
  - Slow speech [Recovered/Resolved]
  - Dysphonia [Recovered/Resolved]
  - Neurological decompensation [Recovered/Resolved]
  - Product use in unapproved indication [Unknown]
  - Tremor [Recovered/Resolved]
  - Speech disorder [Recovered/Resolved]
